FAERS Safety Report 15589504 (Version 2)
Quarter: 2018Q4

REPORT INFORMATION
  Report Type: Spontaneous
  Country: IT (occurrence: IT)
  Receive Date: 20181106
  Receipt Date: 20181107
  Transmission Date: 20190205
  Serious: Yes (Other)
  Sender: FDA-Public Use
  Company Number: IT-AMGEN-ITANI2018154331

PATIENT
  Age: 50 Year
  Sex: Female

DRUGS (3)
  1. FILGRASTIM [Suspect]
     Active Substance: FILGRASTIM
     Indication: LEUKOPENIA
     Dosage: 1 DF, QD
     Route: 058
     Dates: start: 20180925, end: 20180928
  2. PACLITAXEL. [Concomitant]
     Active Substance: PACLITAXEL
     Dosage: UNK
  3. OXALIPLATIN. [Concomitant]
     Active Substance: OXALIPLATIN
     Dosage: UNK

REACTIONS (1)
  - Angioedema [Unknown]

NARRATIVE: CASE EVENT DATE: 20181001
